FAERS Safety Report 11387229 (Version 1)
Quarter: 2015Q3

REPORT INFORMATION
  Report Type: Spontaneous
  Country: US (occurrence: None)
  Receive Date: 20150814
  Receipt Date: 20150814
  Transmission Date: 20151125
  Serious: No
  Sender: FDA-Public Use
  Company Number: None

PATIENT
  Sex: Male
  Weight: 97.7 kg

DRUGS (1)
  1. GILENYA [Suspect]
     Active Substance: FINGOLIMOD HYDROCHLORIDE
     Indication: MULTIPLE SCLEROSIS
     Route: 048
     Dates: start: 20150128, end: 20150719

REACTIONS (7)
  - Hyperhidrosis [None]
  - Chills [None]
  - Pyrexia [None]
  - Injection site reaction [None]
  - Headache [None]
  - Neck pain [None]
  - Myalgia [None]

NARRATIVE: CASE EVENT DATE: 20150714
